APPROVED DRUG PRODUCT: SCANDONEST L
Active Ingredient: LEVONORDEFRIN; MEPIVACAINE HYDROCHLORIDE
Strength: 0.05MG/ML;2%
Dosage Form/Route: INJECTABLE;INJECTION
Application: A088388 | Product #001
Applicant: DEPROCO INC
Approved: Oct 10, 1984 | RLD: No | RS: No | Type: DISCN